FAERS Safety Report 23654961 (Version 1)
Quarter: 2024Q1

REPORT INFORMATION
  Report Type: Spontaneous
  Country: US (occurrence: US)
  Receive Date: 20240320
  Receipt Date: 20240320
  Transmission Date: 20240409
  Serious: Yes (Other)
  Sender: FDA-Public Use
  Company Number: US-MYLANLABS-2024M1025470

PATIENT
  Age: 74 Year
  Sex: Female

DRUGS (3)
  1. CLINDAMYCIN [Suspect]
     Active Substance: CLINDAMYCIN
     Indication: Eye infection toxoplasmal
     Dosage: UNK, 1.0MG IN 0.1ML IN THE LEFT EYE
  2. SULFAMETHOXAZOLE\TRIMETHOPRIM [Suspect]
     Active Substance: SULFAMETHOXAZOLE\TRIMETHOPRIM
     Indication: Eye infection toxoplasmal
     Dosage: UNK, DOUBLE STRENGTH
     Route: 048
  3. PREDNISOLONE ACETATE [Concomitant]
     Active Substance: PREDNISOLONE ACETATE
     Indication: Eye infection toxoplasmal
     Dosage: UNK, QID, FOUR TIMES DAILY IN THE LEFT EYE
     Route: 061

REACTIONS (3)
  - Retinopathy [Unknown]
  - Gastrointestinal disorder [Unknown]
  - Off label use [Unknown]
